FAERS Safety Report 13003629 (Version 2)
Quarter: 2016Q4

REPORT INFORMATION
  Report Type: Spontaneous
  Country: GB (occurrence: GB)
  Receive Date: 20161206
  Receipt Date: 20161219
  Transmission Date: 20170207
  Serious: Yes (Other)
  Sender: FDA-Public Use
  Company Number: GB-009507513-2010SP060108

PATIENT
  Age: 43 Year
  Sex: Male
  Weight: 131 kg

DRUGS (7)
  1. SUGAMMADEX SODIUM [Suspect]
     Active Substance: SUGAMMADEX SODIUM
     Indication: ANAESTHESIA REVERSAL
     Dosage: 270 MG, ONCE
  2. METFORMIN [Concomitant]
     Active Substance: METFORMIN HYDROCHLORIDE
     Indication: TYPE 2 DIABETES MELLITUS
  3. ROCURONIUM BROMIDE. [Concomitant]
     Active Substance: ROCURONIUM BROMIDE
     Indication: ENDOTRACHEAL INTUBATION
  4. CRIXOFOL [Concomitant]
     Active Substance: PROPOFOL
     Indication: ANAESTHESIA PROCEDURE
     Dosage: ROUTE: TARGET CONTROLLED INFUSION
  5. INSTILLAGEL [Suspect]
     Active Substance: CHLORHEXIDINE GLUCONATE\LIDOCAINE HYDROCHLORIDE
     Indication: LOCAL ANAESTHESIA
     Dosage: UNK
     Route: 066
  6. REMIFENTANIL HYDROCHLORIDE [Concomitant]
     Active Substance: REMIFENTANIL HYDROCHLORIDE
     Indication: ANAESTHESIA PROCEDURE
  7. NITROUS OXIDE. [Concomitant]
     Active Substance: NITROUS OXIDE
     Indication: ANAESTHESIA PROCEDURE

REACTIONS (9)
  - Oedema peripheral [Unknown]
  - Swelling face [Recovering/Resolving]
  - Hyperhidrosis [Unknown]
  - Lip swelling [Recovering/Resolving]
  - Oxygen saturation decreased [Recovering/Resolving]
  - Heart rate decreased [Recovering/Resolving]
  - Blood pressure systolic decreased [Recovering/Resolving]
  - Anaphylactoid reaction [Recovering/Resolving]
  - Pallor [Unknown]
